FAERS Safety Report 8171596-1 (Version None)
Quarter: 2012Q1

REPORT INFORMATION
  Report Type: 
  Country: None (occurrence: None)
  Receive Date: 20120113
  Receipt Date: 20111010
  Transmission Date: 20120608
  Serious: No
  Sender: FDA-Public Use
  Company Number: PHEH2011US06531

PATIENT
  Age: 39 Year
  Sex: Female
  Weight: 48.1 kg

DRUGS (7)
  1. MIRENA (LEVONORGESTREL) INTRA UTERINE DEVICE [Concomitant]
  2. NAPROSYN [Concomitant]
  3. ASMANEX TWISTHALER [Concomitant]
  4. ZYRTEC [Concomitant]
  5. VYVANSE [Concomitant]
  6. ZOLOFT [Concomitant]
  7. ILARIS [Suspect]
     Indication: URTICARIA THERMAL
     Dosage: 150 MG, Q8WEEK, SUBCUTANEOUS
     Route: 058
     Dates: start: 20101022

REACTIONS (3)
  - WEIGHT INCREASED [None]
  - CHILLS [None]
  - URTICARIA [None]
